FAERS Safety Report 19197348 (Version 5)
Quarter: 2021Q3

REPORT INFORMATION
  Report Type: Report from Study
  Country: US (occurrence: US)
  Receive Date: 20210429
  Receipt Date: 20210901
  Transmission Date: 20211014
  Serious: Yes (Other)
  Sender: FDA-Public Use
  Company Number: US-TAKEDA-US202009979

PATIENT
  Age: 65 Year
  Sex: Female
  Weight: 71 kg

DRUGS (53)
  1. CLOBETASOL [Concomitant]
     Active Substance: CLOBETASOL
  2. BESIVANCE [Concomitant]
     Active Substance: BESIFLOXACIN
  3. BERINERT [Concomitant]
     Active Substance: HUMAN C1-ESTERASE INHIBITOR
  4. DEPO?MEDROL [Concomitant]
     Active Substance: METHYLPREDNISOLONE ACETATE
  5. GAMMAGARD LIQUID [Suspect]
     Active Substance: HUMAN IMMUNOGLOBULIN G
     Indication: IMMUNE SYSTEM DISORDER
  6. COMPLEMENT C1 ESTERASE INHIBITOR [Suspect]
     Active Substance: CONESTAT ALFA
     Indication: PRODUCT USED FOR UNKNOWN INDICATION
     Dosage: UNK
     Route: 058
  7. ESTRADIOL. [Concomitant]
     Active Substance: ESTRADIOL
     Indication: PRODUCT USED FOR UNKNOWN INDICATION
  8. LOPERAMIDE [Concomitant]
     Active Substance: LOPERAMIDE
  9. CURCUMIN [Concomitant]
     Active Substance: CURCUMIN
  10. HAEGARDA [Concomitant]
     Active Substance: HUMAN C1-ESTERASE INHIBITOR
  11. DIAMINE OXIDASE [Concomitant]
  12. SHINGRIX [Concomitant]
     Active Substance: RECOMBINANT VARICELLA ZOSTER VIRUS (VZV) GLYCOPROTEIN E
  13. TUBERCULIN NOS [Concomitant]
     Active Substance: TUBERCULIN PURIFIED PROTEIN DERIVATIVE
  14. VALERIAN ROOT [VALERIANA OFFICINALIS ROOT] [Concomitant]
     Active Substance: VALERIAN
  15. SIMETHICONE (DIMETHICONE) [Concomitant]
     Active Substance: DIMETHICONE
  16. BRIMONIDINE [Concomitant]
     Active Substance: BRIMONIDINE TARTRATE
  17. CALCIUM CITRATE [Concomitant]
     Active Substance: CALCIUM CITRATE
  18. PNEUMOVAX 23 [Concomitant]
     Active Substance: PNEUMOCOCCAL VACCINE, POLYVALENT 23
  19. IMODIUM A?D [Concomitant]
     Active Substance: LOPERAMIDE HYDROCHLORIDE
  20. RHODIOLA ROSEA [Concomitant]
     Active Substance: HERBALS
  21. ICATIBANT [Suspect]
     Active Substance: ICATIBANT ACETATE
     Indication: IMMUNE SYSTEM DISORDER
     Dosage: 30 MILLIGRAM, AS REQD
     Route: 058
     Dates: start: 20121023
  22. GINGER ROOT [ZINGIBER OFFICINALE RHIZOME] [Concomitant]
  23. METHYLPREDNISOLONE. [Concomitant]
     Active Substance: METHYLPREDNISOLONE
  24. SACCHAROMYCES BOULARDII [Concomitant]
     Active Substance: SACCHAROMYCES CEREVISIAE
  25. VITAMIN D3 [Concomitant]
     Active Substance: CHOLECALCIFEROL
     Indication: PRODUCT USED FOR UNKNOWN INDICATION
  26. ASHWAGANDHA [WITHANIA SOMNIFERA ROOT] [Concomitant]
     Indication: PRODUCT USED FOR UNKNOWN INDICATION
  27. HEPARIN [Concomitant]
     Active Substance: HEPARIN SODIUM
  28. FLUBLOK QUADRIVALENT NOS [Concomitant]
     Active Substance: INFLUENZA VIRUS VACCINE
  29. FORTEO [Concomitant]
     Active Substance: TERIPARATIDE
  30. BENADRYL [Concomitant]
     Active Substance: DIPHENHYDRAMINE HYDROCHLORIDE
  31. CORTIZONE 10 [Concomitant]
     Active Substance: HYDROCORTISONE
  32. GAMMAGARD LIQUID [Suspect]
     Active Substance: HUMAN IMMUNOGLOBULIN G
     Indication: MYASTHENIA GRAVIS
     Dosage: 65 GRAM, Q2WEEKS
     Route: 042
     Dates: start: 20210407
  33. PREDNISONE. [Concomitant]
     Active Substance: PREDNISONE
     Indication: PRODUCT USED FOR UNKNOWN INDICATION
  34. DIPHENHYDRAMINE. [Concomitant]
     Active Substance: DIPHENHYDRAMINE
  35. PROLENSA [Concomitant]
     Active Substance: BROMFENAC SODIUM
  36. CLONAZEPAM. [Concomitant]
     Active Substance: CLONAZEPAM
  37. ICATIBANT [Suspect]
     Active Substance: ICATIBANT ACETATE
     Indication: IMMUNE SYSTEM DISORDER
     Dosage: 30 MILLIGRAM, AS REQD
     Route: 058
     Dates: start: 20121023
  38. PROGESTERONE. [Concomitant]
     Active Substance: PROGESTERONE
     Indication: PRODUCT USED FOR UNKNOWN INDICATION
  39. RESTASIS [Concomitant]
     Active Substance: CYCLOSPORINE
     Indication: PRODUCT USED FOR UNKNOWN INDICATION
  40. IBUPROFEN. [Concomitant]
     Active Substance: IBUPROFEN
  41. LOTEMAX [Concomitant]
     Active Substance: LOTEPREDNOL ETABONATE
  42. ACETAMINOPHEN. [Concomitant]
     Active Substance: ACETAMINOPHEN
  43. EPINEPHRINE. [Concomitant]
     Active Substance: EPINEPHRINE
  44. NASAL SPRAY II [Concomitant]
  45. POTASSIUM [Concomitant]
     Active Substance: POTASSIUM
  46. ACIDIL [Concomitant]
  47. GAMMAGARD LIQUID [Suspect]
     Active Substance: HUMAN IMMUNOGLOBULIN G
     Indication: POLYMYOSITIS
  48. STRESS B COMPLEX [VITAMINS NOS] [Concomitant]
     Indication: PRODUCT USED FOR UNKNOWN INDICATION
  49. NORMAL SALINE [Concomitant]
     Active Substance: SODIUM CHLORIDE
  50. SOLU?MEDROL [Concomitant]
     Active Substance: METHYLPREDNISOLONE SODIUM SUCCINATE
  51. PYRIDOSTIGMINE [Concomitant]
     Active Substance: PYRIDOSTIGMINE
  52. COLLAGEN [Concomitant]
     Active Substance: COLLAGEN
  53. MESTINON [Concomitant]
     Active Substance: PYRIDOSTIGMINE BROMIDE

REACTIONS (8)
  - Cataract [Unknown]
  - Contusion [Unknown]
  - Splinter [Unknown]
  - Diarrhoea [Unknown]
  - Infusion site pain [Unknown]
  - Catheter site erythema [Unknown]
  - Rash [Unknown]
  - Product use in unapproved indication [Unknown]

NARRATIVE: CASE EVENT DATE: 20210413
